FAERS Safety Report 13825401 (Version 3)
Quarter: 2018Q4

REPORT INFORMATION
  Report Type: Spontaneous
  Country: US (occurrence: US)
  Receive Date: 20170802
  Receipt Date: 20181211
  Transmission Date: 20190204
  Serious: Yes (Death, Life-Threatening, Hospitalization, Other)
  Sender: FDA-Public Use
  Company Number: US-JNJFOC-20170724862

PATIENT

DRUGS (2)
  1. RISPERIDONE. [Suspect]
     Active Substance: RISPERIDONE
     Indication: SCHIZOPHRENIA
     Route: 065
  2. OLANZAPINE. [Suspect]
     Active Substance: OLANZAPINE
     Indication: SCHIZOPHRENIA
     Route: 065

REACTIONS (8)
  - Suicide attempt [Unknown]
  - Treatment failure [Unknown]
  - Aggression [Unknown]
  - Suicidal ideation [Unknown]
  - Hospitalisation [Unknown]
  - Completed suicide [Fatal]
  - Imprisonment [Unknown]
  - Antipsychotic drug level below therapeutic [Unknown]
